FAERS Safety Report 6575022-5 (Version None)
Quarter: 2010Q1

REPORT INFORMATION
  Report Type: 
  Country: None (occurrence: None)
  Receive Date: 20100209
  Receipt Date: 20100128
  Transmission Date: 20100710
  Serious: Yes (Hospitalization)
  Sender: FDA-Public Use
  Company Number: US-BAYER-201012724NA

PATIENT

DRUGS (1)
  1. LEUKINE [Suspect]
     Indication: DRUG USE FOR UNKNOWN INDICATION
     Dosage: DOSING WAS NOT PROVIDED

REACTIONS (1)
  - BACK PAIN [None]
